FAERS Safety Report 22275482 (Version 1)
Quarter: 2023Q2

REPORT INFORMATION
  Report Type: Spontaneous
  Country: BR (occurrence: BR)
  Receive Date: 20230502
  Receipt Date: 20230502
  Transmission Date: 20230721
  Serious: Yes (Hospitalization, Disabling, Other)
  Sender: FDA-Public Use
  Company Number: BR-JNJFOC-20230466470

PATIENT

DRUGS (7)
  1. TOPAMAX [Suspect]
     Active Substance: TOPIRAMATE
     Indication: Product used for unknown indication
     Route: 048
  2. PAROXETINE [Concomitant]
     Active Substance: PAROXETINE
  3. ALPRAZOLAM [Concomitant]
     Active Substance: ALPRAZOLAM
     Dosage: AT NIGHT
  4. LEVOMEPROMAZINE [Concomitant]
     Active Substance: LEVOMEPROMAZINE
     Dosage: AT NIGHT
  5. BUSPIRONE HYDROCHLORIDE [Concomitant]
     Active Substance: BUSPIRONE HYDROCHLORIDE
  6. REXULTI [Concomitant]
     Active Substance: BREXPIPRAZOLE
  7. RIVOTRIL [Concomitant]
     Active Substance: CLONAZEPAM

REACTIONS (22)
  - Suicide attempt [Unknown]
  - Suicidal ideation [Unknown]
  - Disability [Unknown]
  - Hospitalisation [Unknown]
  - Hypotonia [Unknown]
  - Anhedonia [Unknown]
  - Abulia [Unknown]
  - Affect lability [Unknown]
  - Cognitive disorder [Unknown]
  - Anxiety [Unknown]
  - Panic disorder [Unknown]
  - Insomnia [Unknown]
  - Trichotillomania [Unknown]
  - Eating disorder [Unknown]
  - Hypersomnia [Unknown]
  - Vomiting [Unknown]
  - Apathy [Unknown]
  - Fear [Unknown]
  - Irritability [Unknown]
  - Nervousness [Unknown]
  - Agitation [Unknown]
  - Depression [Unknown]

NARRATIVE: CASE EVENT DATE: 20220725
